FAERS Safety Report 24387486 (Version 1)
Quarter: 2024Q4

REPORT INFORMATION
  Report Type: Spontaneous
  Country: US (occurrence: None)
  Receive Date: 20241001
  Receipt Date: 20241001
  Transmission Date: 20250115
  Serious: No
  Sender: Public
  Company Number: None

PATIENT
  Age: 68 Year
  Sex: Male
  Weight: 112 kg

DRUGS (2)
  1. APIXABAN [Suspect]
     Active Substance: APIXABAN
     Indication: Atrial fibrillation
     Dosage: FREQUENCY : TWICE A DAY;?
     Route: 048
  2. ASPIRIN [Suspect]
     Active Substance: ASPIRIN

REACTIONS (8)
  - Haematochezia [None]
  - Abdominal pain [None]
  - Nausea [None]
  - Colitis ischaemic [None]
  - Gastrointestinal tract adenoma [None]
  - Haemorrhoids [None]
  - Hiatus hernia [None]
  - Barrett^s oesophagus [None]

NARRATIVE: CASE EVENT DATE: 20240117
